FAERS Safety Report 4754856-3 (Version None)
Quarter: 2005Q3

REPORT INFORMATION
  Report Type: 
  Country: None (occurrence: None)
  Receive Date: 20050829
  Receipt Date: 20050303
  Transmission Date: 20060218
  Serious: Yes (Hospitalization, Other)
  Sender: FDA-Public Use
  Company Number: US-MERCK-0503USA00806

PATIENT
  Age: 62 Year
  Sex: Female
  Weight: 82 kg

DRUGS (23)
  1. VIOXX [Suspect]
     Indication: PAIN
     Route: 048
     Dates: start: 20021007, end: 20031111
  2. VIOXX [Suspect]
     Route: 048
     Dates: start: 20020106, end: 20030910
  3. VIOXX [Suspect]
     Route: 048
     Dates: end: 20040801
  4. ACEON [Concomitant]
     Route: 065
     Dates: start: 20010927, end: 20041205
  5. ACTOS [Concomitant]
     Route: 065
  6. GLYBURIDE [Concomitant]
     Route: 065
  7. LOZOL [Concomitant]
     Route: 065
  8. GLUCOPHAGE [Concomitant]
     Route: 065
  9. ACETAMINOPHEN [Concomitant]
     Route: 065
     Dates: start: 19990105, end: 20040101
  10. LIPITOR [Concomitant]
     Route: 065
     Dates: start: 19990307
  11. ALPRAZOLAM [Concomitant]
     Route: 065
  12. PAXIL [Concomitant]
     Route: 065
  13. VERELAN PM [Concomitant]
     Route: 065
  14. AMBIEN [Concomitant]
     Route: 065
  15. CLONIDINE [Concomitant]
     Route: 065
  16. PREVACID [Concomitant]
     Route: 065
  17. CIPROFLOXACIN HCL [Concomitant]
     Route: 065
  18. COVERA-HS [Concomitant]
     Route: 065
  19. TRAMADOL MSD [Concomitant]
     Route: 065
  20. SULFAMETHOXAZOLE AND TRIMETHOPRIM [Concomitant]
     Route: 065
  21. CELEBREX [Concomitant]
     Route: 065
     Dates: start: 20000101, end: 20040101
  22. PREMARIN [Concomitant]
     Route: 065
     Dates: start: 19990211
  23. HYDROQUINONE [Concomitant]
     Route: 065

REACTIONS (12)
  - ABDOMINAL PAIN UPPER [None]
  - ANXIETY [None]
  - BLOOD GLUCOSE INCREASED [None]
  - BLOOD PRESSURE INCREASED [None]
  - DEPRESSION [None]
  - EMOTIONAL DISTRESS [None]
  - GASTRIC DISORDER [None]
  - INSOMNIA [None]
  - MUSCLE SPASMS [None]
  - PAIN [None]
  - SILENT MYOCARDIAL INFARCTION [None]
  - URINARY TRACT INFECTION [None]
